FAERS Safety Report 23783284 (Version 1)
Quarter: 2024Q2

REPORT INFORMATION
  Report Type: Spontaneous
  Country: GB (occurrence: GB)
  Receive Date: 20240425
  Receipt Date: 20240425
  Transmission Date: 20240715
  Serious: Yes (Death, Life-Threatening, Hospitalization, Other)
  Sender: FDA-Public Use
  Company Number: GB-AMGEN-GBRSP2024080301

PATIENT

DRUGS (1)
  1. FILGRASTIM [Suspect]
     Active Substance: FILGRASTIM
     Indication: Autologous haematopoietic stem cell transplant
     Dosage: 5 MICROGRAM/KILOGRAM (FROM DAY 5 UNTIL THE DAY OF STEM-CELL HARVEST)
     Route: 065

REACTIONS (10)
  - Death [Fatal]
  - Renal failure [Fatal]
  - Pulmonary veno-occlusive disease [Fatal]
  - Respiratory failure [Fatal]
  - Adverse reaction [Unknown]
  - Unevaluable event [Unknown]
  - Disability [Unknown]
  - Thrombotic microangiopathy [Unknown]
  - Acute kidney injury [Unknown]
  - C-reactive protein increased [Unknown]
